FAERS Safety Report 5913185-2 (Version None)
Quarter: 2008Q3

REPORT INFORMATION
  Report Type: 
  Country: None (occurrence: None)
  Receive Date: 20080909
  Receipt Date: 20071106
  Transmission Date: 20090109
  Serious: Yes (Hospitalization, Disabling)
  Sender: FDA-Public Use
  Company Number: 163-20785-07100247 (0)

PATIENT
  Age: 68 Year
  Sex: Female

DRUGS (2)
  1. THALOMID [Suspect]
     Indication: MULTIPLE MYELOMA
     Dosage: 200 MG, DAILY, ORAL : 100 MG, 1 IN 1 D, ORAL
     Route: 048
     Dates: start: 20070613, end: 20070901
  2. THALOMID [Suspect]
     Indication: MULTIPLE MYELOMA
     Dosage: 200 MG, DAILY, ORAL : 100 MG, 1 IN 1 D, ORAL
     Route: 048
     Dates: start: 20071001

REACTIONS (4)
  - ASTHENIA [None]
  - HYPOTENSION [None]
  - MOVEMENT DISORDER [None]
  - PAIN [None]
